FAERS Safety Report 12488826 (Version 1)
Quarter: 2016Q2

REPORT INFORMATION
  Report Type: Spontaneous
  Country: GB (occurrence: GB)
  Receive Date: 20160622
  Receipt Date: 20160622
  Transmission Date: 20160815
  Serious: Yes (Life-Threatening, Other)
  Sender: FDA-Public Use
  Company Number: GB-SA-2016SA114437

PATIENT
  Age: 29 Year
  Sex: Male
  Weight: 109.76 kg

DRUGS (5)
  1. DIAZEPAM. [Concomitant]
     Active Substance: DIAZEPAM
     Route: 065
  2. NAPROXEN. [Concomitant]
     Active Substance: NAPROXEN
     Route: 065
  3. FEXOFENADINE HYDROCHLORIDE. [Suspect]
     Active Substance: FEXOFENADINE HYDROCHLORIDE
     Indication: SKIN REACTION
     Route: 048
     Dates: start: 20160601, end: 20160606
  4. BUPROPION HYDROCHLORIDE. [Concomitant]
     Active Substance: BUPROPION HYDROCHLORIDE
     Route: 065
  5. PARACETAMOL [Concomitant]
     Active Substance: ACETAMINOPHEN
     Route: 065

REACTIONS (5)
  - Depression [Recovering/Resolving]
  - Anxiety [Recovering/Resolving]
  - Condition aggravated [Unknown]
  - Suicidal ideation [Recovering/Resolving]
  - Bronchopulmonary dysplasia [Unknown]

NARRATIVE: CASE EVENT DATE: 20160602
